FAERS Safety Report 7285671-7 (Version None)
Quarter: 2011Q1

REPORT INFORMATION
  Report Type: 
  Country: None (occurrence: None)
  Receive Date: 20110210
  Receipt Date: 20110131
  Transmission Date: 20110831
  Serious: Yes (Hospitalization)
  Sender: FDA-Public Use
  Company Number: B0688090A

PATIENT
  Sex: Female

DRUGS (13)
  1. ZERIT [Suspect]
     Indication: HIV INFECTION
     Route: 048
     Dates: start: 20070601, end: 20070901
  2. STATINS [Concomitant]
     Dates: start: 20071001
  3. EPIVIR [Suspect]
     Indication: HIV INFECTION
     Route: 048
     Dates: start: 20070601, end: 20080501
  4. NORVIR [Suspect]
     Indication: HIV INFECTION
     Route: 048
  5. ISENTRESS [Concomitant]
     Indication: HIV INFECTION
     Route: 048
     Dates: start: 20100701
  6. CALCIUM ANTAGONIST [Concomitant]
     Dates: start: 20071001
  7. KALETRA [Suspect]
     Indication: HIV INFECTION
     Route: 048
     Dates: start: 20070601, end: 20080501
  8. ZIAGEN [Suspect]
     Dates: end: 20081101
  9. DARUNAVIR [Suspect]
     Indication: HIV INFECTION
     Route: 048
  10. VIREAD [Suspect]
     Indication: HIV INFECTION
     Route: 048
     Dates: start: 20081101, end: 20100701
  11. EMTRIVA [Suspect]
     Indication: HIV INFECTION
     Route: 048
     Dates: start: 20081101, end: 20100701
  12. ZIAGEN [Suspect]
     Indication: HIV INFECTION
     Route: 048
     Dates: start: 20070901, end: 20080501
  13. EPIVIR [Suspect]
     Route: 048
     Dates: end: 20081101

REACTIONS (13)
  - GASTRIC ULCER [None]
  - VOMITING [None]
  - ESSENTIAL HYPERTENSION [None]
  - COMPRESSION FRACTURE [None]
  - BLOOD TRIGLYCERIDES INCREASED [None]
  - HYPOAESTHESIA [None]
  - RENAL IMPAIRMENT [None]
  - BLOOD CHOLESTEROL INCREASED [None]
  - OSTEOPOROSIS [None]
  - DUODENAL ULCER [None]
  - HYPERLIPIDAEMIA [None]
  - HYPERTENSION [None]
  - DYSPHAGIA [None]
